FAERS Safety Report 5258136-1 (Version None)
Quarter: 2007Q1

REPORT INFORMATION
  Report Type: 
  Country: None (occurrence: None)
  Receive Date: 20070307
  Receipt Date: 20070302
  Transmission Date: 20070707
  Serious: Yes (Other)
  Sender: FDA-Public Use
  Company Number: JP-BOEHRINGER INGELHEIM PHARMACEUTICALS, INC.-2007-BP-03012NB

PATIENT
  Sex: Female

DRUGS (3)
  1. PERSANTIN [Suspect]
     Indication: KAWASAKI'S DISEASE
     Route: 048
     Dates: start: 20061116, end: 20061130
  2. ASPIRIN [Concomitant]
     Indication: KAWASAKI'S DISEASE
     Route: 048
     Dates: start: 20061116, end: 20061130
  3. PERIACTIN [Concomitant]
     Indication: HYPERSENSITIVITY
     Route: 048
     Dates: start: 20061116, end: 20061130

REACTIONS (1)
  - HEPATIC FUNCTION ABNORMAL [None]
